FAERS Safety Report 15104050 (Version 4)
Quarter: 2018Q3

REPORT INFORMATION
  Report Type: Spontaneous
  Country: US (occurrence: US)
  Receive Date: 20180703
  Receipt Date: 20180906
  Transmission Date: 20181010
  Serious: Yes (Life-Threatening, Other)
  Sender: FDA-Public Use
  Company Number: US-PFIZER INC-2018100057

PATIENT
  Sex: Female
  Weight: 59 kg

DRUGS (1)
  1. DEPO?PROVERA [Suspect]
     Active Substance: MEDROXYPROGESTERONE ACETATE
     Indication: CONTRACEPTION
     Dosage: UNK
     Dates: start: 20000426, end: 201611

REACTIONS (15)
  - Migraine [Not Recovered/Not Resolved]
  - Central nervous system lesion [Not Recovered/Not Resolved]
  - Gait disturbance [Not Recovered/Not Resolved]
  - Cerebrovascular accident [Not Recovered/Not Resolved]
  - Illness anxiety disorder [Not Recovered/Not Resolved]
  - Headache [Not Recovered/Not Resolved]
  - Hypertension [Not Recovered/Not Resolved]
  - Idiopathic intracranial hypertension [Not Recovered/Not Resolved]
  - Blindness [Unknown]
  - Deafness [Unknown]
  - Myocardial infarction [Not Recovered/Not Resolved]
  - Optic nerve disorder [Unknown]
  - Tachycardia [Not Recovered/Not Resolved]
  - Munchausen^s syndrome [Not Recovered/Not Resolved]
  - Weight decreased [Not Recovered/Not Resolved]
